FAERS Safety Report 8852679 (Version 3)
Quarter: 2012Q4

REPORT INFORMATION
  Report Type: 
  Country: US (occurrence: US)
  Receive Date: 20121022
  Receipt Date: 20121109
  Transmission Date: 20130627
  Serious: Yes (Other)
  Sender: FDA-Public Use
  Company Number: US-PFIZER INC-2012261101

PATIENT
  Age: 71 Year
  Sex: Female
  Weight: 95.24 kg

DRUGS (4)
  1. TIKOSYN [Suspect]
     Indication: ATRIAL FLUTTER
     Dosage: 250 ug, 2x/day
     Dates: start: 20120516
  2. XARELTO [Concomitant]
     Indication: ANTICOAGULANT THERAPY
     Dosage: UNK
  3. ARMOUR THYROID [Concomitant]
     Indication: THYROID DISORDER
     Dosage: 180 mg, daily
  4. VITAMIN D [Concomitant]
     Indication: TENDON DISORDER
     Dosage: daily

REACTIONS (4)
  - Dermatitis bullous [Unknown]
  - Erythema [Unknown]
  - Pain of skin [Not Recovered/Not Resolved]
  - Skin sensitisation [Not Recovered/Not Resolved]
